FAERS Safety Report 9210733 (Version 1)
Quarter: 2013Q2

REPORT INFORMATION
  Report Type: Report from Study
  Country: JP (occurrence: JP)
  Receive Date: 20130404
  Receipt Date: 20130404
  Transmission Date: 20140414
  Serious: Yes (Hospitalization)
  Sender: FDA-Public Use
  Company Number: JP-GLAXOSMITHKLINE-B0466558A

PATIENT
  Age: 57 Year
  Sex: Male

DRUGS (2)
  1. ZEFIX 100 [Suspect]
     Indication: HEPATIC CIRRHOSIS
     Dosage: 100MG PER DAY
     Route: 048
     Dates: start: 20030801, end: 20061128
  2. BARACLUDE [Concomitant]
     Indication: HEPATIC CIRRHOSIS
     Dosage: 1MG PER DAY
     Route: 048
     Dates: start: 20061129

REACTIONS (5)
  - Hepatocellular carcinoma [Recovering/Resolving]
  - Hepatitis B [Recovering/Resolving]
  - Pathogen resistance [Unknown]
  - Alanine aminotransferase increased [Unknown]
  - Aspartate aminotransferase increased [Unknown]
